FAERS Safety Report 24742928 (Version 1)
Quarter: 2024Q4

REPORT INFORMATION
  Report Type: Spontaneous
  Country: US (occurrence: None)
  Receive Date: 20241215
  Receipt Date: 20241215
  Transmission Date: 20250114
  Serious: Yes (unspecified)
  Sender: Public
  Company Number: None

PATIENT
  Age: 43 Year
  Sex: Female
  Weight: 54.45 kg

DRUGS (12)
  1. INJECTAFER [Suspect]
     Active Substance: FERRIC CARBOXYMALTOSE
     Indication: Iron deficiency anaemia
     Dates: start: 20240514, end: 20240521
  2. CALCITRIOL [Concomitant]
     Active Substance: CALCITRIOL
  3. pphosphorus neutra [Concomitant]
  4. PEPCID [Concomitant]
     Active Substance: FAMOTIDINE
  5. ACETYLCYSTEINE [Concomitant]
     Active Substance: ACETYLCYSTEINE
  6. ALPHA LIPOIC ACID [Concomitant]
     Active Substance: .ALPHA.-LIPOIC ACID
  7. VITAMINS [Concomitant]
     Active Substance: VITAMINS
  8. MAGNESIUM [Concomitant]
     Active Substance: MAGNESIUM
  9. JWH-018 [Concomitant]
     Active Substance: JWH-018
  10. CHOLINE [Concomitant]
     Active Substance: CHOLINE
  11. myo-inosotal [Concomitant]
  12. COENZYME Q10 [Concomitant]
     Active Substance: DIETARY SUPPLEMENT\UBIDECARENONE

REACTIONS (3)
  - Feeling abnormal [None]
  - Blood phosphorus decreased [None]
  - Hypophosphatasia [None]

NARRATIVE: CASE EVENT DATE: 20240514
